FAERS Safety Report 6590731-X (Version None)
Quarter: 2010Q1

REPORT INFORMATION
  Report Type: 
  Country: None (occurrence: None)
  Receive Date: 20100219
  Receipt Date: 20100211
  Transmission Date: 20100710
  Serious: Yes (Other)
  Sender: FDA-Public Use
  Company Number: SK-WYE-H11866309

PATIENT
  Sex: Female
  Weight: 73 kg

DRUGS (6)
  1. TEMSIROLIMUS [Suspect]
     Indication: METASTATIC RENAL CELL CARCINOMA
     Route: 042
     Dates: start: 20090423, end: 20090817
  2. SALMETEROL/FLUTICASONE [Concomitant]
     Indication: ASTHMA
     Dosage: UNKNOWN
     Dates: start: 20040101
  3. LOSARTAN POTASSIUM [Concomitant]
     Indication: HYPERTENSION
     Dosage: UNKNOWN
     Dates: start: 20020101
  4. MONTELUKAST SODIUM [Concomitant]
     Indication: ASTHMA
     Dosage: UNKNOWN
     Dates: start: 20040101
  5. BEVACIZUMAB [Suspect]
     Indication: METASTATIC RENAL CELL CARCINOMA
     Route: 042
     Dates: start: 20090423, end: 20090630
  6. DIOSMIN/HESPERIDIN [Concomitant]
     Dosage: UNKNOWN
     Dates: start: 20040101

REACTIONS (1)
  - NEPHROTIC SYNDROME [None]
